FAERS Safety Report 9344285 (Version 2)
Quarter: 2013Q2

REPORT INFORMATION
  Report Type: Spontaneous
  Country: EE (occurrence: EE)
  Receive Date: 20130612
  Receipt Date: 20130624
  Transmission Date: 20140414
  Serious: Yes (Other)
  Sender: FDA-Public Use
  Company Number: EE-US-EMD SERONO, INC.-7215596

PATIENT
  Sex: 0

DRUGS (1)
  1. INTERFERON BETA-1A [Suspect]
     Indication: PRODUCT USED FOR UNKNOWN INDICATION

REACTIONS (1)
  - Autoimmune disorder [Unknown]
